FAERS Safety Report 5935629-2 (Version None)
Quarter: 2008Q4

REPORT INFORMATION
  Report Type: 
  Country: None (occurrence: None)
  Receive Date: 20081028
  Receipt Date: 20081013
  Transmission Date: 20090506
  Serious: Yes (Death)
  Sender: FDA-Public Use
  Company Number: 2008AL011195

PATIENT
  Sex: Male

DRUGS (1)
  1. DIGOXIN [Suspect]
     Dosage: UNK UNK PO
     Route: 048

REACTIONS (7)
  - CONGESTIVE CARDIOMYOPATHY [None]
  - ECONOMIC PROBLEM [None]
  - FAMILY STRESS [None]
  - IMPAIRED WORK ABILITY [None]
  - INJURY [None]
  - PAIN [None]
  - RENAL FAILURE [None]
